FAERS Safety Report 13292830 (Version 1)
Quarter: 2017Q1

REPORT INFORMATION
  Report Type: Report from Study
  Country: US (occurrence: US)
  Receive Date: 20170303
  Receipt Date: 20170303
  Transmission Date: 20170428
  Serious: Yes (Other)
  Sender: FDA-Public Use
  Company Number: US-PFIZER INC-2017083116

PATIENT

DRUGS (3)
  1. FLUDARABINE PHOSPHATE. [Suspect]
     Active Substance: FLUDARABINE PHOSPHATE
     Dosage: A TOTAL DOSE OF 150 MG/M2 OR 5 MG/KG, DAYS -8 TO -4
  2. MELPHALAN [Suspect]
     Active Substance: MELPHALAN
     Dosage: 140 MG/M2 OR 4.7 MG/KG, DAY -3
  3. ALEMTUZUMAB [Suspect]
     Active Substance: ALEMTUZUMAB
     Dosage: 48 OR 33 MG, DAYS -22 TO -19

REACTIONS (2)
  - Second primary malignancy [Unknown]
  - Fibrosarcoma [Unknown]
